FAERS Safety Report 20157335 (Version 1)
Quarter: 2021Q4

REPORT INFORMATION
  Report Type: Spontaneous
  Country: US (occurrence: US)
  Receive Date: 20211207
  Receipt Date: 20211207
  Transmission Date: 20220303
  Serious: No
  Sender: FDA-Public Use
  Company Number: US-FERRINGPH-2021FE00957

PATIENT
  Sex: Female

DRUGS (3)
  1. MENOPUR [Suspect]
     Active Substance: FOLLITROPIN\LUTEINIZING HORMONE
     Indication: Product used for unknown indication
     Route: 065
  2. GANIRELIX [Suspect]
     Active Substance: GANIRELIX
     Indication: Product used for unknown indication
     Route: 065
  3. FOLLISTIM [Suspect]
     Active Substance: FOLLITROPIN
     Indication: Product used for unknown indication
     Route: 065

REACTIONS (3)
  - Headache [Recovered/Resolved]
  - Abdominal distension [Recovered/Resolved]
  - Nausea [Recovered/Resolved]

NARRATIVE: CASE EVENT DATE: 20210101
